FAERS Safety Report 7155165-8 (Version None)
Quarter: 2010Q4

REPORT INFORMATION
  Report Type: 
  Country: None (occurrence: None)
  Receive Date: 20101214
  Receipt Date: 20091202
  Transmission Date: 20110411
  Serious: No
  Sender: FDA-Public Use
  Company Number: US-AMGEN-QUU342132

PATIENT

DRUGS (1)
  1. ENBREL [Suspect]
     Indication: RHEUMATOID ARTHRITIS
     Dosage: 50 MG, QWK
     Route: 058
     Dates: start: 20011101

REACTIONS (5)
  - FALL [None]
  - GROIN PAIN [None]
  - OEDEMA PERIPHERAL [None]
  - VARICOSE VEIN [None]
  - WOUND [None]
